FAERS Safety Report 24678011 (Version 2)
Quarter: 2025Q2

REPORT INFORMATION
  Report Type: Spontaneous
  Country: IN (occurrence: IN)
  Receive Date: 20241129
  Receipt Date: 20250620
  Transmission Date: 20250717
  Serious: Yes (Hospitalization, Other)
  Sender: ORGANON
  Company Number: IN-MERCK-0305USA01646

PATIENT
  Age: 65 Year
  Sex: Male

DRUGS (6)
  1. SIMVASTATIN [Interacting]
     Active Substance: SIMVASTATIN
     Dosage: 10 MILLIGRAM, PER DAY (QD)
     Route: 048
     Dates: start: 199611, end: 199911
  2. SIMVASTATIN [Interacting]
     Active Substance: SIMVASTATIN
     Dosage: 10 MG, QD
     Route: 048
     Dates: start: 20000126, end: 20000309
  3. FLUTAMIDE [Interacting]
     Active Substance: FLUTAMIDE
     Dosage: 250 MILLIGRAM, TWICE A DAY (BID)
     Dates: start: 199905, end: 20000227
  4. METFORMIN [Concomitant]
     Active Substance: METFORMIN HYDROCHLORIDE
  5. ISOSORBIDE MONONITRATE [Concomitant]
     Active Substance: ISOSORBIDE MONONITRATE
     Dates: start: 199611
  6. AMLODIPINE BESYLATE [Concomitant]
     Active Substance: AMLODIPINE BESYLATE
     Dates: start: 199611

REACTIONS (3)
  - Hepatitis cholestatic [Unknown]
  - Prostate cancer [Unknown]
  - Drug interaction [Unknown]

NARRATIVE: CASE EVENT DATE: 19990101
